FAERS Safety Report 7546593-7 (Version None)
Quarter: 2011Q2

REPORT INFORMATION
  Report Type: 
  Country: None (occurrence: None)
  Receive Date: 20110614
  Receipt Date: 20110609
  Transmission Date: 20111010
  Serious: Yes (Hospitalization)
  Sender: FDA-Public Use
  Company Number: IT-ELI_LILLY_AND_COMPANY-IT201106002496

PATIENT
  Sex: Male

DRUGS (6)
  1. METBAY [Concomitant]
     Dosage: 500 MG, TID
  2. EMAGEL [Concomitant]
     Dosage: 3 DF, UNKNOWN
     Route: 051
  3. RAMIPRIL [Concomitant]
     Dosage: 2.5 MG, UNKNOWN
     Route: 048
  4. ZOLOFT [Concomitant]
     Dosage: 1 DF, UNKNOWN
     Route: 048
  5. HUMULIN R [Suspect]
     Indication: HYPERGLYCAEMIA
     Dosage: 100 IU, QD
     Dates: start: 20110524, end: 20110526
  6. CIPROFLOXACIN [Concomitant]
     Dosage: 500 MG, BID
     Route: 048

REACTIONS (1)
  - HYPERPYREXIA [None]
